FAERS Safety Report 9053219 (Version 1)
Quarter: 2013Q1

REPORT INFORMATION
  Report Type: Spontaneous
  Country: US (occurrence: US)
  Receive Date: 20130208
  Receipt Date: 20130208
  Transmission Date: 20140127
  Serious: No
  Sender: FDA-Public Use
  Company Number: US-009507513-1302USA002791

PATIENT
  Sex: Female

DRUGS (5)
  1. COSOPT PF [Suspect]
     Indication: GLAUCOMA
     Dosage: 2%-0.5 % 1 STANDARD PACKAGE OF 60 ONE DROP IN BOTH EYES TWICE A DAY
     Route: 047
     Dates: start: 201301
  2. ZIOPTAN [Concomitant]
  3. ASCORBIC ACID [Concomitant]
  4. CALCIUM (UNSPECIFIED) [Concomitant]
  5. FLAXSEED [Concomitant]

REACTIONS (3)
  - Eye pain [Not Recovered/Not Resolved]
  - Drug dose omission [Unknown]
  - Product quality issue [Unknown]
